FAERS Safety Report 21631009 (Version 2)
Quarter: 2023Q1

REPORT INFORMATION
  Report Type: Spontaneous
  Country: US (occurrence: US)
  Receive Date: 20221123
  Receipt Date: 20230103
  Transmission Date: 20230418
  Serious: No
  Sender: FDA-Public Use
  Company Number: US-BIOVITRUM-2022US13374

PATIENT
  Sex: Male
  Weight: 10 kg

DRUGS (4)
  1. SYNAGIS [Suspect]
     Active Substance: PALIVIZUMAB
     Indication: Atrial septal defect
     Dosage: 100 MG SDV/INJ PF 1ML 1S AND 50 MG SDV/INJ PF 0.5 ML 1S
  2. SYNAGIS [Suspect]
     Active Substance: PALIVIZUMAB
     Indication: Illness
  3. FUROSEMIDE [Concomitant]
     Active Substance: FUROSEMIDE
  4. SYNAGIS [Suspect]
     Active Substance: PALIVIZUMAB
     Indication: Premature baby

REACTIONS (3)
  - Cough [Not Recovered/Not Resolved]
  - Rhinorrhoea [Not Recovered/Not Resolved]
  - Ear infection [Not Recovered/Not Resolved]
